FAERS Safety Report 4322005-1 (Version None)
Quarter: 2004Q1

REPORT INFORMATION
  Report Type: 
  Country: None (occurrence: None)
  Receive Date: 20040319
  Receipt Date: 20031217
  Transmission Date: 20041129
  Serious: No
  Sender: FDA-Public Use
  Company Number: 200300503

PATIENT
  Age: 72 Year
  Sex: Female
  Weight: 52.1637 kg

DRUGS (4)
  1. LUMIGAN [Suspect]
     Indication: GLAUCOMA
     Dosage: 2 DROP QHS EYE
     Dates: start: 20020911
  2. LUMIGAN [Suspect]
     Indication: GLAUCOMA
     Dosage: 1 DROP QHS EYE
  3. BETOPTIC [Concomitant]
  4. COSOPT [Suspect]
     Indication: GLAUCOMA
     Dosage: 2 DROP BID EYE

REACTIONS (12)
  - DRUG INEFFECTIVE [None]
  - ERYTHEMA OF EYELID [None]
  - EYE DISCHARGE [None]
  - EYE IRRITATION [None]
  - EYE PRURITUS [None]
  - EYE REDNESS [None]
  - EYELID MARGIN CRUSTING [None]
  - GROWTH OF EYELASHES [None]
  - IRIS HYPERPIGMENTATION [None]
  - KERATOCONJUNCTIVITIS SICCA [None]
  - PLATELET COUNT DECREASED [None]
  - SKIN HYPERPIGMENTATION [None]
